FAERS Safety Report 14853447 (Version 1)
Quarter: 2018Q2

REPORT INFORMATION
  Report Type: Spontaneous
  Country: CN (occurrence: CN)
  Receive Date: 20180507
  Receipt Date: 20180507
  Transmission Date: 20180711
  Serious: Yes (Life-Threatening)
  Sender: FDA-Public Use
  Company Number: CN-PURDUE PHARMA-GBR-2018-0055554

PATIENT
  Age: 67 Year
  Sex: Male
  Weight: 46 kg

DRUGS (2)
  1. MS CONTIN [Suspect]
     Active Substance: MORPHINE SULFATE
     Indication: PAIN MANAGEMENT
     Dosage: 120 MG, Q12H
     Route: 048
     Dates: start: 20180310, end: 20180311
  2. MS CONTIN [Suspect]
     Active Substance: MORPHINE SULFATE
     Dosage: 10 TO 20 MG
     Route: 048
     Dates: start: 20180310, end: 20180311

REACTIONS (3)
  - Shock [Recovering/Resolving]
  - Nausea [Recovering/Resolving]
  - Vomiting [Recovering/Resolving]

NARRATIVE: CASE EVENT DATE: 20180310
